FAERS Safety Report 11485084 (Version 1)
Quarter: 2015Q3

REPORT INFORMATION
  Report Type: Spontaneous
  Country: US (occurrence: US)
  Receive Date: 20150903
  Receipt Date: 20150903
  Transmission Date: 20151125
  Serious: Yes (Death, Hospitalization, Other)
  Sender: FDA-Public Use
  Company Number: US-ELI_LILLY_AND_COMPANY-US201209003117

PATIENT
  Age: 34 Year
  Sex: Male

DRUGS (1)
  1. CYMBALTA [Suspect]
     Active Substance: DULOXETINE HYDROCHLORIDE
     Indication: POST-TRAUMATIC STRESS DISORDER
     Dosage: 60MG, UNK
     Dates: end: 20120831

REACTIONS (4)
  - Musculoskeletal pain [Unknown]
  - Completed suicide [Fatal]
  - Intentional product misuse [Unknown]
  - Suicidal ideation [Not Recovered/Not Resolved]
